FAERS Safety Report 7463745-5 (Version None)
Quarter: 2011Q2

REPORT INFORMATION
  Report Type: 
  Country: None (occurrence: None)
  Receive Date: 20110506
  Receipt Date: 20110408
  Transmission Date: 20111010
  Serious: Yes (Hospitalization)
  Sender: FDA-Public Use
  Company Number: ES-PFIZER INC-2009293626

PATIENT
  Sex: Male
  Weight: 61 kg

DRUGS (7)
  1. MYLOTARG [Suspect]
     Indication: ACUTE MYELOID LEUKAEMIA
     Dosage: 5 MG, 1X/DAY
     Route: 042
     Dates: start: 20091017, end: 20091017
  2. CYTARABINE [Suspect]
     Indication: ACUTE MYELOID LEUKAEMIA
     Dosage: 70 MG, 1X/DAY
     Dates: start: 20091017, end: 20091023
  3. CEFTAZIDIME [Concomitant]
     Indication: PYREXIA
     Dosage: 6 G, 1X/DAY
     Route: 042
     Dates: start: 20091017, end: 20091024
  4. POSACONAZOLE [Concomitant]
     Indication: PROPHYLAXIS
     Dosage: 600 MG, 1X/DAY
     Dates: start: 20091017, end: 20091024
  5. HIBOR [Concomitant]
     Indication: PROPHYLAXIS
     Dosage: 2500 IU, 1X/DAY
     Route: 058
     Dates: start: 20091017, end: 20091024
  6. AMIKACIN [Concomitant]
     Indication: PYREXIA
     Dosage: 1 G, 1X/DAY
     Route: 042
     Dates: start: 20091017, end: 20091106
  7. IDARUBICIN HCL [Suspect]
     Indication: ACUTE MYELOID LEUKAEMIA
     Dosage: 20 MG, 1X/DAY
     Route: 039
     Dates: start: 20091018, end: 20091020

REACTIONS (2)
  - SEPTIC SHOCK [None]
  - ACUTE PULMONARY OEDEMA [None]
